FAERS Safety Report 23236944 (Version 1)
Quarter: 2023Q4

REPORT INFORMATION
  Report Type: Spontaneous
  Country: DE (occurrence: DE)
  Receive Date: 20231128
  Receipt Date: 20231128
  Transmission Date: 20240110
  Serious: Yes (Other)
  Sender: FDA-Public Use
  Company Number: DE-HALEON-DECH2023HLN058221

PATIENT

DRUGS (3)
  1. SCOPOLAMINE [Suspect]
     Active Substance: SCOPOLAMINE
     Indication: Salivary hypersecretion
     Dosage: UNK
     Route: 062
     Dates: start: 2023
  2. DOXYLAMINE SUCCINATE [Suspect]
     Active Substance: DOXYLAMINE SUCCINATE
     Indication: Product used for unknown indication
     Dosage: UNK
     Route: 065
  3. PIPAMPERONE [Suspect]
     Active Substance: PIPAMPERONE
     Indication: Product used for unknown indication
     Dosage: UNK
     Route: 065

REACTIONS (9)
  - Urinary retention [Unknown]
  - Speech sound disorder [Unknown]
  - Muscle twitching [Unknown]
  - Vomiting [Unknown]
  - Feeling abnormal [Unknown]
  - Mydriasis [Unknown]
  - Micturition disorder [Unknown]
  - Therapeutic response unexpected [Unknown]
  - Off label use [Unknown]

NARRATIVE: CASE EVENT DATE: 20230101
